FAERS Safety Report 5130139-7 (Version None)
Quarter: 2006Q4

REPORT INFORMATION
  Report Type: 
  Country: None (occurrence: None)
  Receive Date: 20061013
  Receipt Date: 20061003
  Transmission Date: 20070319
  Serious: Yes (Death, Life-Threatening, Hospitalization)
  Sender: FDA-Public Use
  Company Number: 2006-01005

PATIENT
  Age: 72 Year
  Sex: Male

DRUGS (2)
  1. VELCADE [Suspect]
     Indication: MYELODYSPLASTIC SYNDROME
     Dosage: 1.00 MG/M2, INTRAVENOUS
     Route: 042
     Dates: start: 20060421, end: 20060421
  2. THALIDOMIDE (THALIDOMIDE) [Suspect]
     Indication: MYELODYSPLASTIC SYNDROME
     Dosage: 50.00 MG, ORAL
     Route: 048
     Dates: start: 20060421, end: 20060422

REACTIONS (61)
  - ABDOMINAL PAIN [None]
  - ACUTE RESPIRATORY DISTRESS SYNDROME [None]
  - AORTIC ANEURYSM [None]
  - AORTIC ARTERIOSCLEROSIS [None]
  - ARTERIOSCLEROSIS [None]
  - ATRIAL FIBRILLATION [None]
  - AUTOIMMUNE THYROIDITIS [None]
  - BAND NEUTROPHIL COUNT INCREASED [None]
  - BAND NEUTROPHIL PERCENTAGE INCREASED [None]
  - BENIGN PROSTATIC HYPERPLASIA [None]
  - BLOOD CREATININE INCREASED [None]
  - BLOOD LACTIC ACID INCREASED [None]
  - CARDIOMEGALY [None]
  - CHILLS [None]
  - CHOLESTEROSIS [None]
  - CORONARY ARTERY DISEASE [None]
  - DILATATION ATRIAL [None]
  - DRUG TOXICITY [None]
  - ERYTHEMA [None]
  - GENERAL PHYSICAL HEALTH DETERIORATION [None]
  - GLOMERULOSCLEROSIS [None]
  - HAEMATOCRIT DECREASED [None]
  - HAEMODIALYSIS [None]
  - HAEMOGLOBIN DECREASED [None]
  - HAEMORRHAGE [None]
  - HEART RATE INCREASED [None]
  - HEPATIC INFECTION [None]
  - HEPATIC STEATOSIS [None]
  - HYDROCELE [None]
  - HYPERPLASTIC CHOLECYSTOPATHY [None]
  - HYPERTROPHY [None]
  - HYPOTHALAMO-PITUITARY DISORDERS [None]
  - INFECTION [None]
  - INTESTINAL ISCHAEMIA [None]
  - KIDNEY FIBROSIS [None]
  - LIVER ABSCESS [None]
  - LIVER DISORDER [None]
  - LUNG INFILTRATION [None]
  - MELAENA [None]
  - METAMYELOCYTE PERCENTAGE INCREASED [None]
  - MONOCYTE COUNT INCREASED [None]
  - MYELOCYTE PERCENTAGE INCREASED [None]
  - MYOCARDIAL FIBROSIS [None]
  - NAUSEA [None]
  - PLATELET COUNT DECREASED [None]
  - PLEURAL EFFUSION [None]
  - PNEUMONIA [None]
  - PNEUMONIA BACTERIAL [None]
  - PULMONARY HAEMORRHAGE [None]
  - PULMONARY OEDEMA [None]
  - PYREXIA [None]
  - RED BLOOD CELL MACROCYTES PRESENT [None]
  - RENAL ARTERY ARTERIOSCLEROSIS [None]
  - RENAL CYST [None]
  - RENAL DISORDER [None]
  - RENAL FAILURE [None]
  - RENAL FAILURE ACUTE [None]
  - TESTICULAR DISORDER [None]
  - URINE OUTPUT DECREASED [None]
  - VENTRICULAR HYPERTROPHY [None]
  - VOMITING [None]
